FAERS Safety Report 8603607-0 (Version None)
Quarter: 2012Q3

REPORT INFORMATION
  Report Type: 
  Country: None (occurrence: None)
  Receive Date: 20120817
  Receipt Date: 20120416
  Transmission Date: 20120928
  Serious: Yes (Hospitalization)
  Sender: FDA-Public Use
  Company Number: US-ROCHE-GNE322690

PATIENT
  Sex: Male
  Weight: 4.086 kg

DRUGS (1)
  1. OMALIZUMAB [Suspect]
     Indication: ASTHMA
     Dosage: UNK
     Route: 064
     Dates: start: 20081001

REACTIONS (5)
  - JAUNDICE [None]
  - GASTROOESOPHAGEAL REFLUX DISEASE [None]
  - ALLERGY TO ARTHROPOD BITE [None]
  - MATERNAL EXPOSURE TIMING UNSPECIFIED [None]
  - DERMATITIS DIAPER [None]
